FAERS Safety Report 5178664-7 (Version None)
Quarter: 2006Q4

REPORT INFORMATION
  Report Type: 
  Country: None (occurrence: None)
  Receive Date: 20061208
  Receipt Date: 20061128
  Transmission Date: 20070319
  Serious: Yes (Other)
  Sender: FDA-Public Use
  Company Number: 2006142749

PATIENT
  Age: 67 Year
  Sex: Female
  Weight: 60 kg

DRUGS (2)
  1. LIPITOR [Suspect]
     Indication: HYPERCHOLESTEROLAEMIA
     Dosage: 10 MG (10 MG, 1 IN 1 D), ORAL
     Route: 048
     Dates: start: 20061001
  2. GENERAL NUTRIENTS/VITAMINS NOS (GENERAL NUTRIENTS VITAMINS NOS) [Concomitant]

REACTIONS (4)
  - EYE DISORDER [None]
  - LACRIMATION INCREASED [None]
  - MALAISE [None]
  - VISUAL ACUITY REDUCED [None]
